FAERS Safety Report 5011282-X (Version None)
Quarter: 2006Q2

REPORT INFORMATION
  Report Type: 
  Country: None (occurrence: None)
  Receive Date: 20060404
  Receipt Date: 20051230
  Transmission Date: 20061013
  Serious: No
  Sender: FDA-Public Use
  Company Number: US200601000073

PATIENT
  Age: 32 Year
  Sex: Female

DRUGS (2)
  1. CYMBALTA [Suspect]
     Indication: DEPRESSION
     Dosage: SEE IMAGE
     Dates: start: 20040101
  2. WELLBUTRIN [Concomitant]

REACTIONS (6)
  - AGITATION [None]
  - DIZZINESS [None]
  - FEELING ABNORMAL [None]
  - HANGOVER [None]
  - HEADACHE [None]
  - WEIGHT INCREASED [None]
